FAERS Safety Report 6302141-0 (Version None)
Quarter: 2009Q3

REPORT INFORMATION
  Report Type: 
  Country: None (occurrence: None)
  Receive Date: 20090807
  Receipt Date: 20090731
  Transmission Date: 20100115
  Serious: Yes (Death, Congenital Anomaly)
  Sender: FDA-Public Use
  Company Number: CH-MERCK-0908CHE00001B1

PATIENT
  Age: -2 Day
  Sex: Female

DRUGS (1)
  1. PROSCAR [Suspect]
     Route: 064

REACTIONS (1)
  - SPINA BIFIDA [None]
